FAERS Safety Report 7728089-2 (Version None)
Quarter: 2011Q3

REPORT INFORMATION
  Report Type: 
  Country: None (occurrence: None)
  Receive Date: 20110905
  Receipt Date: 20110829
  Transmission Date: 20111222
  Serious: Yes (Death, Hospitalization)
  Sender: FDA-Public Use
  Company Number: US-BRISTOL-MYERS SQUIBB COMPANY-13275334

PATIENT
  Age: 74 Year
  Sex: Male
  Weight: 69 kg

DRUGS (21)
  1. ZOLOFT [Concomitant]
     Indication: DEPRESSION
     Route: 048
     Dates: start: 20051101
  2. AZITHROMYCIN [Concomitant]
     Indication: INFECTION
     Route: 048
     Dates: start: 20051215
  3. FOLIC ACID [Concomitant]
     Route: 048
     Dates: start: 20051215
  4. AMARYL [Concomitant]
     Indication: HYPERGLYCAEMIA
     Route: 048
     Dates: start: 20051226
  5. TESSALON [Concomitant]
  6. ROCEPHIN [Concomitant]
     Indication: INFECTION
     Route: 042
     Dates: start: 20051214, end: 20051220
  7. DILTIAZEM CD [Concomitant]
     Indication: HYPERTENSION
     Route: 048
     Dates: start: 20051223
  8. CETUXIMAB [Suspect]
     Indication: NON-SMALL CELL LUNG CANCER
     Dosage: INITIATED 21-DEC-05(400 MG/M2). THE 4TH + MOST RECENT INFUSION WAS ADMINISTERED ON 17-JAN-2006.
     Route: 042
     Dates: start: 20051221, end: 20060117
  9. DEXAMETHASONE [Concomitant]
     Route: 042
     Dates: start: 20051220
  10. AVELOX [Concomitant]
     Indication: PNEUMONIA
     Route: 048
     Dates: start: 20051230, end: 20060105
  11. GLIMEPIRIDE [Concomitant]
  12. CARDIZEM [Concomitant]
     Indication: HYPERTENSION
     Route: 048
     Dates: start: 20051223
  13. ZOFRAN [Concomitant]
  14. PEMETREXED DISODIUM [Suspect]
     Indication: NON-SMALL CELL LUNG CANCER
     Dosage: INITIATED 21-DEC-05.
     Route: 042
     Dates: start: 20051221, end: 20060110
  15. MULTI-VITAMIN [Concomitant]
     Dosage: 1 DF = 1 UNITS NOS
     Route: 048
     Dates: start: 19900101
  16. NORVASC [Concomitant]
     Indication: HYPERTENSION
     Route: 048
     Dates: end: 20051223
  17. OXYCODONE HCL [Concomitant]
     Indication: PAIN
     Dosage: Q6H.OXYIR SG
     Route: 048
     Dates: start: 20051213
  18. LUNESTA [Concomitant]
     Indication: INSOMNIA
     Route: 048
     Dates: start: 20050901
  19. MEGACE [Concomitant]
     Indication: DECREASED APPETITE
     Route: 048
     Dates: start: 20050901, end: 20051230
  20. DEXAMETHASONE [Concomitant]
     Dosage: 4MG PO BID.20DEC05-UNK.
     Route: 042
     Dates: start: 20051221, end: 20051221
  21. CARDIZEM [Concomitant]
     Route: 048
     Dates: start: 20051223

REACTIONS (4)
  - PNEUMONIA [None]
  - FALL [None]
  - CEREBRAL INFARCTION [None]
  - MASTOIDITIS [None]
